FAERS Safety Report 23250208 (Version 2)
Quarter: 2024Q1

REPORT INFORMATION
  Report Type: Report from Study
  Country: US (occurrence: US)
  Receive Date: 20231201
  Receipt Date: 20240319
  Transmission Date: 20240410
  Serious: Yes (Other)
  Sender: FDA-Public Use
  Company Number: US-002147023-NVSC2023US253410

PATIENT
  Sex: Female

DRUGS (2)
  1. ENTRESTO [Suspect]
     Active Substance: SACUBITRIL\VALSARTAN
     Indication: Cardiac failure
     Dosage: 24 MG, BID (24/26 MG, PHARMACY BOTTLE)
     Route: 048
     Dates: start: 20231117
  2. ENTRESTO [Suspect]
     Active Substance: SACUBITRIL\VALSARTAN
     Dosage: UNK, BID (1 1/2 TABLET TWICE A DAY)
     Route: 048

REACTIONS (4)
  - Arrhythmia [Unknown]
  - Hypotension [Unknown]
  - Nasopharyngitis [Unknown]
  - Off label use [Unknown]
